FAERS Safety Report 5990394-8 (Version None)
Quarter: 2008Q4

REPORT INFORMATION
  Report Type: 
  Country: None (occurrence: None)
  Receive Date: 20081209
  Receipt Date: 20081124
  Transmission Date: 20090506
  Serious: Yes (Hospitalization)
  Sender: FDA-Public Use
  Company Number: 2008S1021021

PATIENT
  Age: 32 Year
  Sex: Male

DRUGS (12)
  1. CLOZAPINE [Suspect]
     Indication: SCHIZOPHRENIA, PARANOID TYPE
     Dosage: 900 MG; DAILY
     Dates: start: 20010601
  2. FLUVOXAMINE MALEATE [Suspect]
     Indication: METABOLIC DISORDER
     Dosage: 50 MG;DAILY
     Dates: start: 20050901
  3. HALOPERIDOL [Concomitant]
  4. AMISULPRIDE [Concomitant]
  5. ZUCLOPENTHIXOL [Concomitant]
  6. RISPERIDONE [Concomitant]
  7. FLUPHENAZINE [Concomitant]
  8. OLANZAPINE [Concomitant]
  9. CHLORPROMAZINE [Concomitant]
  10. LEVOMEPROMAZINE [Concomitant]
  11. CARBAMAZEPINE [Concomitant]
  12. MARIJUANA [Concomitant]

REACTIONS (8)
  - ANTIPSYCHOTIC DRUG LEVEL BELOW THERAPEUTIC [None]
  - CONDITION AGGRAVATED [None]
  - DRUG INEFFECTIVE [None]
  - GENOTYPE DRUG RESISTANCE TEST POSITIVE [None]
  - MANIA [None]
  - METABOLIC DISORDER [None]
  - PSYCHOTIC DISORDER [None]
  - SEDATION [None]
